FAERS Safety Report 7542769-3 (Version None)
Quarter: 2011Q2

REPORT INFORMATION
  Report Type: 
  Country: None (occurrence: None)
  Receive Date: 20110613
  Receipt Date: 20110511
  Transmission Date: 20111010
  Serious: Yes (Other)
  Sender: FDA-Public Use
  Company Number: B0719387A

PATIENT
  Sex: Female

DRUGS (2)
  1. RELENZA [Suspect]
     Indication: INFLUENZA
     Dosage: 20MG PER DAY
     Route: 055
     Dates: start: 20110425, end: 20110427
  2. ACETAMINOPHEN [Concomitant]
     Indication: ANTIPYRESIS
     Dosage: 600MG PER DAY
     Route: 048
     Dates: start: 20110424, end: 20110427

REACTIONS (1)
  - WHITE BLOOD CELL COUNT DECREASED [None]
